FAERS Safety Report 5757117-9 (Version None)
Quarter: 2008Q2

REPORT INFORMATION
  Report Type: 
  Country: None (occurrence: None)
  Receive Date: 20080603
  Receipt Date: 20080521
  Transmission Date: 20081010
  Serious: Yes (Other)
  Sender: FDA-Public Use
  Company Number: JP-MERCK-0805USA05452

PATIENT
  Sex: Female

DRUGS (4)
  1. PRIMAXIN [Suspect]
     Indication: INFECTION
     Route: 065
  2. CEFAZOLIN SODIUM [Suspect]
     Indication: INFECTION
     Route: 065
  3. CEFOTIAM HYDROCHLORIDE [Suspect]
     Indication: INFECTION
     Route: 065
  4. [THERAPY UNSPECIFIED] [Suspect]
     Indication: INFECTION
     Route: 065

REACTIONS (7)
  - BLOOD IMMUNOGLOBULIN M INCREASED [None]
  - CAESAREAN SECTION [None]
  - CHORIOAMNIONITIS [None]
  - DRUG EXPOSURE DURING PREGNANCY [None]
  - INTRAUTERINE INFECTION [None]
  - MECONIUM STAIN [None]
  - PREMATURE RUPTURE OF MEMBRANES [None]
